FAERS Safety Report 8678152 (Version 2)
Quarter: 2012Q4

REPORT INFORMATION
  Report Type: 
  Country: US (occurrence: US)
  Receive Date: 20120723
  Receipt Date: 20120822
  Transmission Date: 20130627
  Serious: Yes (Other)
  Sender: FDA-Public Use
  Company Number: US-ELI_LILLY_AND_COMPANY-US201207003812

PATIENT
  Sex: Female
  Weight: 45.35 kg

DRUGS (1)
  1. CYMBALTA [Suspect]
     Indication: NECK PAIN
     Dosage: 30 mg, bid
     Route: 048
     Dates: start: 20120222

REACTIONS (2)
  - Jaundice [Not Recovered/Not Resolved]
  - Blood bilirubin increased [Not Recovered/Not Resolved]
